FAERS Safety Report 4319591-4 (Version None)
Quarter: 2004Q1

REPORT INFORMATION
  Report Type: 
  Country: None (occurrence: None)
  Receive Date: 20040319
  Receipt Date: 20040312
  Transmission Date: 20041129
  Serious: Yes (Life-Threatening)
  Sender: FDA-Public Use
  Company Number: ES-ROCHE-361626

PATIENT
  Age: 42 Year
  Sex: Female
  Weight: 83.5 kg

DRUGS (6)
  1. PEGASYS [Suspect]
     Indication: HEPATITIS C
     Route: 058
     Dates: start: 20040227, end: 20040305
  2. COPEGUS [Concomitant]
     Indication: HEPATITIS C
     Route: 065
     Dates: start: 20040227, end: 20040305
  3. EPIVIR [Concomitant]
     Indication: HIV INFECTION
     Dosage: DESCRIBED AS EPIVIR 300.
     Dates: start: 20040227
  4. ZERIT [Concomitant]
     Indication: HIV INFECTION
     Dosage: DESCRIBED AS ZERIT 40.
  5. VIRAMUNE [Concomitant]
     Indication: HIV INFECTION
     Dosage: DESCRIBED AS VIRAMUNE 180.
  6. IBUPROFEN [Concomitant]
     Dates: start: 20040227

REACTIONS (6)
  - ESCHERICHIA BACTERAEMIA [None]
  - HEPATORENAL FAILURE [None]
  - HEPATOSPLENOMEGALY [None]
  - PLEURAL EFFUSION [None]
  - PYREXIA [None]
  - SEPTIC SHOCK [None]
